FAERS Safety Report 17848375 (Version 1)
Quarter: 2020Q2

REPORT INFORMATION
  Report Type: Spontaneous
  Country: US (occurrence: US)
  Receive Date: 20200602
  Receipt Date: 20200602
  Transmission Date: 20200714
  Serious: Yes (Hospitalization)
  Sender: FDA-Public Use
  Company Number: US-TEVA-2020-US-1242150

PATIENT
  Age: 40 Year
  Sex: Female
  Weight: 94.5 kg

DRUGS (10)
  1. SELEXIPAG [Suspect]
     Active Substance: SELEXIPAG
     Dosage: 2400 MICROGRAM DAILY;
     Route: 048
  2. FUROSEMIDE. [Concomitant]
     Active Substance: FUROSEMIDE
     Dosage: AFTERNOON DOSE
     Route: 065
  3. SPIRONOLACTONE. [Concomitant]
     Active Substance: SPIRONOLACTONE
     Dosage: 25 MILLIGRAM DAILY;
     Route: 065
  4. MACITENTAN [Suspect]
     Active Substance: MACITENTAN
     Indication: PULMONARY ARTERIAL HYPERTENSION
     Dosage: 10 MILLIGRAM DAILY;
     Route: 065
  5. TREPROSTINIL. [Suspect]
     Active Substance: TREPROSTINIL
     Dosage: 20 NG/KG/MIN
     Route: 042
  6. TADALAFIL. [Suspect]
     Active Substance: TADALAFIL
     Indication: PULMONARY ARTERIAL HYPERTENSION
     Dosage: 40 MILLIGRAM DAILY;
     Route: 065
  7. METAMFETAMINE [Suspect]
     Active Substance: METHAMPHETAMINE
     Route: 065
  8. TREPROSTINIL. [Suspect]
     Active Substance: TREPROSTINIL
     Indication: PULMONARY ARTERIAL HYPERTENSION
     Dosage: 5 NG/KG/MIN; DOSE INCREASED BY 5 NG/KG/MIN EVERY 24H UNTIL DISCONTINUATION OF SELEXIPAG
     Route: 042
  9. FUROSEMIDE. [Concomitant]
     Active Substance: FUROSEMIDE
     Dosage: 40 MILLIGRAM DAILY; MORNING DOSE
     Route: 065
  10. SELEXIPAG [Suspect]
     Active Substance: SELEXIPAG
     Indication: PULMONARY ARTERIAL HYPERTENSION
     Dosage: 2800 MICROGRAM DAILY; FOR NEARLY 3 YEARS; DECREASED BY 200MICROG EVERY 12H
     Route: 048

REACTIONS (6)
  - Systolic dysfunction [Recovering/Resolving]
  - Nausea [Recovering/Resolving]
  - Pulmonary arterial hypertension [Recovering/Resolving]
  - Right ventricular dysfunction [Recovering/Resolving]
  - Drug ineffective [Unknown]
  - Right ventricular enlargement [Recovering/Resolving]
